FAERS Safety Report 7945358-1 (Version None)
Quarter: 2011Q4

REPORT INFORMATION
  Report Type: 
  Country: None (occurrence: None)
  Receive Date: 20111129
  Receipt Date: 20110426
  Transmission Date: 20120403
  Serious: No
  Sender: FDA-Public Use
  Company Number: US-GLAXOSMITHKLINE-A0924575A

PATIENT
  Age: 61 Year
  Sex: Female

DRUGS (3)
  1. INDERAL [Concomitant]
  2. WELLBUTRIN SR [Suspect]
     Indication: HORMONE LEVEL ABNORMAL
     Dosage: 150MG TWICE PER DAY
     Route: 048
     Dates: start: 20101201
  3. ESTRADIOL [Concomitant]

REACTIONS (1)
  - ALOPECIA [None]
